FAERS Safety Report 7709746-0 (Version None)
Quarter: 2011Q3

REPORT INFORMATION
  Report Type: 
  Country: None (occurrence: None)
  Receive Date: 20110825
  Receipt Date: 20110819
  Transmission Date: 20111222
  Serious: Yes (Hospitalization)
  Sender: FDA-Public Use
  Company Number: DE-AMGEN-DEUCT2011038960

PATIENT
  Age: 70 Year
  Sex: Female

DRUGS (2)
  1. CINACALCET HYDROCHLORIDE [Suspect]
     Indication: HYPERPARATHYROIDISM PRIMARY
     Dosage: UNK
     Route: 048
     Dates: start: 20100622, end: 20100622
  2. ZOLEDRONOC ACID [Concomitant]
     Dosage: 5 MG, Q12MO
     Route: 042
     Dates: start: 20100531

REACTIONS (4)
  - CIRCULATORY COLLAPSE [None]
  - DIARRHOEA [None]
  - DYSPNOEA [None]
  - VERTIGO [None]
